FAERS Safety Report 9264886 (Version 2)
Quarter: 2013Q2

REPORT INFORMATION
  Report Type: Spontaneous
  Country: BR (occurrence: BR)
  Receive Date: 20130501
  Receipt Date: 20130628
  Transmission Date: 20140414
  Serious: Yes (Other)
  Sender: FDA-Public Use
  Company Number: PHHY2013BR041807

PATIENT
  Sex: Male
  Weight: 96 kg

DRUGS (3)
  1. RITALIN LA [Suspect]
     Indication: ATTENTION DEFICIT/HYPERACTIVITY DISORDER
     Dosage: 1 DF, QD
     Route: 048
  2. SERTRALINE [Concomitant]
     Indication: ANXIETY
     Dosage: 1 DF, QD
     Route: 048
  3. SIMVASTATIN [Concomitant]
     Indication: BLOOD CHOLESTEROL INCREASED
     Dosage: 1 DF, QD
     Route: 048

REACTIONS (12)
  - Venous occlusion [Recovered/Resolved]
  - Dyslipidaemia [Recovered/Resolved]
  - Drug withdrawal syndrome [Recovered/Resolved]
  - Attention deficit/hyperactivity disorder [Recovered/Resolved]
  - Impulsive behaviour [Recovered/Resolved]
  - Disorientation [Recovered/Resolved]
  - Aggression [Recovered/Resolved]
  - Negativism [Recovered/Resolved]
  - Judgement impaired [Recovered/Resolved]
  - Disturbance in attention [Recovered/Resolved]
  - Performance status decreased [Recovered/Resolved]
  - Depressed mood [Recovered/Resolved]
